FAERS Safety Report 8337689-0 (Version None)
Quarter: 2012Q2

REPORT INFORMATION
  Report Type: 
  Country: None (occurrence: None)
  Receive Date: 20120504
  Receipt Date: 20120425
  Transmission Date: 20120825
  Serious: Yes (Hospitalization)
  Sender: FDA-Public Use
  Company Number: RO-JNJFOC-20120412522

PATIENT
  Sex: Female

DRUGS (3)
  1. SULFASALAZINE [Concomitant]
     Indication: ANKYLOSING SPONDYLITIS
     Route: 048
  2. MELOXICAM [Concomitant]
     Indication: ANKYLOSING SPONDYLITIS
     Route: 065
  3. REMICADE [Suspect]
     Indication: ANKYLOSING SPONDYLITIS
     Dosage: 4 BOTTLES X 100MG
     Route: 042
     Dates: start: 20110324, end: 20111227

REACTIONS (2)
  - PERITONEAL TUBERCULOSIS [None]
  - PLEURISY [None]
